FAERS Safety Report 9266124 (Version 2)
Quarter: 2013Q2

REPORT INFORMATION
  Report Type: Report from Study
  Country: BR (occurrence: BR)
  Receive Date: 20130502
  Receipt Date: 20130614
  Transmission Date: 20140414
  Serious: Yes (Life-Threatening, Hospitalization)
  Sender: FDA-Public Use
  Company Number: BR-ROCHE-1220464

PATIENT
  Sex: Male
  Weight: 90 kg

DRUGS (1)
  1. PEGASYS [Suspect]
     Indication: HEPATITIS C
     Route: 065
     Dates: start: 2012, end: 201208

REACTIONS (2)
  - Thyroid neoplasm [Unknown]
  - Drug ineffective [Unknown]
